FAERS Safety Report 4329584-9 (Version None)
Quarter: 2004Q2

REPORT INFORMATION
  Report Type: 
  Country: None (occurrence: None)
  Receive Date: 20040401
  Receipt Date: 20040119
  Transmission Date: 20050107
  Serious: Yes (Hospitalization)
  Sender: FDA-Public Use
  Company Number: JP-ROCHE-356463

PATIENT
  Age: 61 Year
  Sex: Female

DRUGS (10)
  1. CALCITRIOL [Suspect]
     Indication: HYPERPARATHYROIDISM SECONDARY
     Route: 042
     Dates: start: 20030317, end: 20030926
  2. CALCITRIOL [Suspect]
     Route: 042
     Dates: start: 20031008
  3. CACO3 [Suspect]
     Route: 048
     Dates: start: 20030210, end: 20030629
  4. SEVELAMER HYDROCHLORIDE [Concomitant]
     Indication: HYPERPARATHYROIDISM SECONDARY
     Dosage: 30 JUN 2003 TO 27 JUL 2003, PATIENT RECEIVED 1G 3 TIMES PER WEEK; 28 JUL TO 7 SEP, PATIENT RECEIVED+
     Route: 048
     Dates: start: 20030630, end: 20031107
  5. SIGMART [Concomitant]
     Indication: ANGINA PECTORIS
     Route: 048
     Dates: start: 20020304, end: 20031107
  6. ADALAT [Concomitant]
     Indication: HYPERTENSION
     Route: 048
     Dates: start: 20021007, end: 20031107
  7. DIOVAN [Concomitant]
     Indication: HYPERTENSION
     Route: 048
     Dates: start: 20020304, end: 20031107
  8. PAXIL [Concomitant]
     Route: 048
     Dates: start: 20020408, end: 20031107
  9. OMEPRAZEN [Concomitant]
     Route: 048
     Dates: start: 20020729, end: 20031107
  10. DIAZEPAM [Concomitant]
     Route: 048
     Dates: start: 20020304, end: 20021107

REACTIONS (3)
  - DUODENAL ULCER [None]
  - GASTROINTESTINAL HAEMORRHAGE [None]
  - HYPERCALCAEMIA [None]
